FAERS Safety Report 21697714 (Version 2)
Quarter: 2025Q2

REPORT INFORMATION
  Report Type: Spontaneous
  Country: IT (occurrence: IT)
  Receive Date: 20221208
  Receipt Date: 20250625
  Transmission Date: 20250717
  Serious: Yes (Other)
  Sender: COSETTE PHARMACEUTICALS INC
  Company Number: IT-COSETTE-CP2022IT000313

PATIENT
  Age: 57 Year
  Sex: Female

DRUGS (2)
  1. AZOR [Suspect]
     Active Substance: AMLODIPINE BESYLATE\OLMESARTAN MEDOXOMIL
     Indication: Hypertension
     Route: 065
  2. LEVOTHYROXINE [Suspect]
     Active Substance: LEVOTHYROXINE
     Indication: Hypothyroidism
     Route: 048

REACTIONS (5)
  - Pneumonia [Unknown]
  - Night sweats [Unknown]
  - Pyrexia [Unknown]
  - Productive cough [Unknown]
  - Asthenia [Unknown]
